FAERS Safety Report 4455635-7 (Version None)
Quarter: 2004Q3

REPORT INFORMATION
  Report Type: 
  Country: None (occurrence: None)
  Receive Date: 20040917
  Receipt Date: 20040901
  Transmission Date: 20050211
  Serious: Yes (Other)
  Sender: FDA-Public Use
  Company Number: USA040977164

PATIENT
  Age: 58 Year
  Sex: Female
  Weight: 58 kg

DRUGS (5)
  1. HUMALOG [Suspect]
     Indication: DIABETES MELLITUS
     Dates: start: 19980101
  2. LANTUS [Concomitant]
  3. SYNTHROID (LEVOTHYROXNE SODIUM) [Concomitant]
  4. ACTONEL [Concomitant]
  5. ENALAPRIL MALEATE [Concomitant]

REACTIONS (2)
  - CHRONIC LYMPHOCYTIC LEUKAEMIA [None]
  - PHARMACEUTICAL PRODUCT COMPLAINT [None]
